FAERS Safety Report 16965174 (Version 2)
Quarter: 2019Q4

REPORT INFORMATION
  Report Type: Report from Study
  Country: US (occurrence: US)
  Receive Date: 20191028
  Receipt Date: 20191122
  Transmission Date: 20200122
  Serious: Yes (Hospitalization, Other)
  Sender: FDA-Public Use
  Company Number: US-GLAXOSMITHKLINE-2019-TSO02025-US

PATIENT
  Age: 43 Year
  Sex: Female

DRUGS (6)
  1. NIRAPARIB [Suspect]
     Active Substance: NIRAPARIB
     Indication: CERVIX CARCINOMA
     Dosage: 300 MG, UNK
     Route: 065
     Dates: start: 20190505, end: 20190929
  2. ATIVAN [Concomitant]
     Active Substance: LORAZEPAM
     Indication: ANXIETY
     Dosage: 0.5 MG, EVERY 6 HOURS AS NEEDED
     Route: 048
  3. SCOPOLAMINE [Concomitant]
     Active Substance: SCOPOLAMINE
     Indication: NAUSEA
  4. PHENERGAN [Concomitant]
     Active Substance: PROMETHAZINE HYDROCHLORIDE
     Indication: PRODUCT USED FOR UNKNOWN INDICATION
     Dosage: UNK
  5. SCOPOLAMINE [Concomitant]
     Active Substance: SCOPOLAMINE
     Indication: VOMITING
  6. PANTOPRAZOLE [Concomitant]
     Active Substance: PANTOPRAZOLE
     Indication: PRODUCT USED FOR UNKNOWN INDICATION
     Dosage: 40 MG, EVEERY MORNING BEFORE BREAKFAST

REACTIONS (18)
  - Jaundice cholestatic [Recovering/Resolving]
  - Nausea [Recovering/Resolving]
  - Pancreatic duct dilatation [Unknown]
  - Decreased appetite [Unknown]
  - Back pain [Not Recovered/Not Resolved]
  - Hepatic enzyme increased [Unknown]
  - Laryngeal nerve dysfunction [Not Recovered/Not Resolved]
  - Swelling [Unknown]
  - Hepatocellular injury [Unknown]
  - Abdominal pain upper [Not Recovered/Not Resolved]
  - Vomiting [Recovering/Resolving]
  - Weight decreased [Unknown]
  - Bile duct obstruction [Unknown]
  - Thrombocytopenia [Recovering/Resolving]
  - Pancreatitis [Recovering/Resolving]
  - Hepatitis acute [Unknown]
  - Leukopenia [Recovering/Resolving]
  - Product use in unapproved indication [Unknown]

NARRATIVE: CASE EVENT DATE: 2019
